FAERS Safety Report 10096801 (Version 1)
Quarter: 2014Q2

REPORT INFORMATION
  Report Type: Report from Study
  Country: US (occurrence: US)
  Receive Date: 20140422
  Receipt Date: 20140422
  Transmission Date: 20141212
  Serious: Yes (Other)
  Sender: FDA-Public Use
  Company Number: US-ABBVIE-14P-163-1225588-00

PATIENT
  Sex: Female
  Weight: 108.96 kg

DRUGS (12)
  1. HUMIRA [Suspect]
     Indication: ANKYLOSING SPONDYLITIS
     Dosage: NO LOADING DOSE
     Dates: start: 201110, end: 2012
  2. HUMIRA [Suspect]
     Indication: IRITIS
  3. CYMBALTA [Suspect]
     Indication: PRODUCT USED FOR UNKNOWN INDICATION
  4. NEXIUM [Concomitant]
     Indication: BARRETT^S OESOPHAGUS
  5. LIPITOR [Concomitant]
     Indication: BLOOD CHOLESTEROL INCREASED
  6. ZETIA [Concomitant]
     Indication: BLOOD CHOLESTEROL INCREASED
  7. SYNTHROID [Concomitant]
     Indication: HYPOTHYROIDISM
  8. METFORMIN [Concomitant]
     Indication: GLUCOSE TOLERANCE IMPAIRED
  9. VITAMIN D [Concomitant]
     Indication: PRODUCT USED FOR UNKNOWN INDICATION
  10. POTASSIUM [Concomitant]
     Indication: PRODUCT USED FOR UNKNOWN INDICATION
  11. HYDROCHLOROTHIAZIDE [Concomitant]
     Indication: FLUID RETENTION
  12. VICODIN [Concomitant]
     Indication: PRODUCT USED FOR UNKNOWN INDICATION
     Dosage: 10-325MG EVERY FOUR HOURS PRN

REACTIONS (10)
  - Ocular neoplasm [Recovered/Resolved]
  - Drug ineffective [Not Recovered/Not Resolved]
  - Pain [Not Recovered/Not Resolved]
  - Fibromyalgia [Not Recovered/Not Resolved]
  - Nausea [Not Recovered/Not Resolved]
  - Intraocular pressure increased [Not Recovered/Not Resolved]
  - Erythema of eyelid [Not Recovered/Not Resolved]
  - Eyelid exfoliation [Not Recovered/Not Resolved]
  - Eye inflammation [Not Recovered/Not Resolved]
  - Iritis [Not Recovered/Not Resolved]
